FAERS Safety Report 5406464-9 (Version None)
Quarter: 2007Q3

REPORT INFORMATION
  Report Type: 
  Country: None (occurrence: None)
  Receive Date: 20070713
  Receipt Date: 20070514
  Transmission Date: 20080115
  Serious: Yes (Hospitalization, Other)
  Sender: FDA-Public Use
  Company Number: US-JNJFOC-20070504311

PATIENT
  Age: 33 Year
  Sex: Female
  Weight: 98.4 kg

DRUGS (2)
  1. ORTHO EVRA [Suspect]
     Indication: CONTRACEPTION
     Dosage: TRANSDERMAL; TRANSDERMAL
     Route: 062
     Dates: start: 20020530, end: 20040412
  2. ORTHO EVRA [Suspect]
     Indication: CONTRACEPTION
     Dosage: TRANSDERMAL; TRANSDERMAL
     Route: 062
     Dates: start: 20050622

REACTIONS (2)
  - MESENTERIC VEIN THROMBOSIS [None]
  - PORTAL VEIN THROMBOSIS [None]
